FAERS Safety Report 8408504-1 (Version None)
Quarter: 2012Q2

REPORT INFORMATION
  Report Type: 
  Country: None (occurrence: None)
  Receive Date: 20120604
  Receipt Date: 20120522
  Transmission Date: 20120825
  Serious: No
  Sender: FDA-Public Use
  Company Number: US-BAYER-2012-053230

PATIENT
  Age: 58 Year
  Sex: Female
  Weight: 90.703 kg

DRUGS (5)
  1. ALEVE (CAPLET) [Suspect]
     Indication: ANALGESIC THERAPY
     Dosage: 1 U, PRN
     Route: 048
     Dates: start: 20080101, end: 20120519
  2. AMLODIPINE [Concomitant]
  3. METOPROLOL TARTRATE [Concomitant]
  4. HYDRALAZINE HCL [Concomitant]
  5. CLONIDINE [Concomitant]

REACTIONS (2)
  - RENAL DISORDER [None]
  - BACK PAIN [None]
